FAERS Safety Report 6785992-8 (Version None)
Quarter: 2010Q2

REPORT INFORMATION
  Report Type: 
  Country: None (occurrence: None)
  Receive Date: 20100622
  Receipt Date: 20100622
  Transmission Date: 20101027
  Serious: Yes (Other)
  Sender: FDA-Public Use
  Company Number: None

PATIENT
  Age: 43 Year
  Sex: Female
  Weight: 72.5755 kg

DRUGS (1)
  1. TYLENOL (CAPLET) [Suspect]
     Indication: MUSCULOSKELETAL CHEST PAIN
     Dosage: 2 PILLS ONCE PER DAY PO
     Route: 048
     Dates: start: 20100612, end: 20100619

REACTIONS (11)
  - ASTHENIA [None]
  - CHILLS [None]
  - DIARRHOEA [None]
  - DISORIENTATION [None]
  - FATIGUE [None]
  - FEELING ABNORMAL [None]
  - GAIT DISTURBANCE [None]
  - MALAISE [None]
  - NAUSEA [None]
  - PRODUCT QUALITY ISSUE [None]
  - PYREXIA [None]
